FAERS Safety Report 4426577-8 (Version None)
Quarter: 2004Q3

REPORT INFORMATION
  Report Type: 
  Country: None (occurrence: None)
  Receive Date: 20040816
  Receipt Date: 20040806
  Transmission Date: 20050211
  Serious: Yes (Hospitalization)
  Sender: FDA-Public Use
  Company Number: DE-AMGEN-UK086119

PATIENT
  Sex: Female

DRUGS (4)
  1. DARBEPOETIN ALFA [Suspect]
     Indication: ANAEMIA OF MALIGNANT DISEASE
     Route: 058
     Dates: start: 20040726
  2. AMLODIPINE [Concomitant]
  3. METOPROLOL [Concomitant]
  4. HUMAN RED BLOOD CELLS [Concomitant]

REACTIONS (1)
  - HYPERTENSIVE CRISIS [None]
